FAERS Safety Report 4557742-7 (Version None)
Quarter: 2005Q1

REPORT INFORMATION
  Report Type: 
  Country: None (occurrence: None)
  Receive Date: 20050103
  Receipt Date: 20040915
  Transmission Date: 20050727
  Serious: Yes (Other)
  Sender: FDA-Public Use
  Company Number: 2004UW16446

PATIENT
  Age: 69 Year
  Sex: Female
  Weight: 63.05 kg

DRUGS (12)
  1. CRESTOR [Suspect]
     Indication: BLOOD CHOLESTEROL INCREASED
     Dosage: 40 MG PO
     Route: 048
     Dates: start: 20040701, end: 20040803
  2. CRESTOR [Suspect]
     Indication: HYPERLIPIDAEMIA
     Dosage: 40 MG PO
     Route: 048
     Dates: start: 20040701, end: 20040803
  3. CRESTOR [Suspect]
     Indication: BLOOD CHOLESTEROL INCREASED
     Dates: start: 20040801
  4. CRESTOR [Suspect]
     Indication: HYPERLIPIDAEMIA
     Dates: start: 20040801
  5. TIMOLOL MALEATE [Concomitant]
  6. PREVACID [Concomitant]
  7. MIACALCIN [Concomitant]
  8. QUININE [Concomitant]
  9. ASPIRIN [Concomitant]
  10. CALCIUM GLUCONATE [Concomitant]
  11. VIOXX [Concomitant]
  12. HYZAAR [Concomitant]

REACTIONS (1)
  - VISUAL DISTURBANCE [None]
